FAERS Safety Report 9166006 (Version 1)
Quarter: 2013Q1

REPORT INFORMATION
  Report Type: Spontaneous
  Country: US (occurrence: None)
  Receive Date: 20130301
  Receipt Date: 20130301
  Transmission Date: 20140127
  Serious: Yes (Disabling)
  Sender: FDA-Public Use
  Company Number: PI-08943

PATIENT
  Age: 19 Year
  Sex: Female

DRUGS (2)
  1. CHLORAPREP (2%CHG/70%IPA) [Suspect]
     Indication: PREOPERATIVE CARE
     Route: 061
     Dates: start: 2013
  2. CHLORAPREP (2%CHG/70%IPA) [Suspect]
     Indication: THERAPEUTIC SKIN CARE TOPICAL
     Route: 061
     Dates: start: 2013

REACTIONS (2)
  - Thermal burn [None]
  - Procedural complication [None]
